FAERS Safety Report 16078104 (Version 4)
Quarter: 2019Q1

REPORT INFORMATION
  Report Type: Spontaneous
  Country: US (occurrence: US)
  Receive Date: 20190315
  Receipt Date: 20190329
  Transmission Date: 20190418
  Serious: No
  Sender: FDA-Public Use
  Company Number: US-UNITED THERAPEUTICS-UNT-2019-004634

PATIENT
  Age: 59 Year
  Sex: Female
  Weight: 73.16 kg

DRUGS (2)
  1. REMODULIN [Suspect]
     Active Substance: TREPROSTINIL
     Indication: PULMONARY ARTERIAL HYPERTENSION
     Dosage: 0.077 ?G/KG, CONTINUING
     Route: 041
     Dates: start: 20190116
  2. REMODULIN [Suspect]
     Active Substance: TREPROSTINIL
     Dosage: 0.077 ?G/KG, CONTINUING
     Route: 041

REACTIONS (4)
  - Injection site reaction [Unknown]
  - Medical device site odour [Unknown]
  - Device leakage [Unknown]
  - Injection site extravasation [Unknown]

NARRATIVE: CASE EVENT DATE: 201902
